FAERS Safety Report 21871721 (Version 1)
Quarter: 2023Q1

REPORT INFORMATION
  Report Type: Spontaneous
  Country: US (occurrence: US)
  Receive Date: 20230117
  Receipt Date: 20230117
  Transmission Date: 20230418
  Serious: No
  Sender: FDA-Public Use
  Company Number: US-PFIZER INC-202300018419

PATIENT
  Sex: Male

DRUGS (5)
  1. DEPO-MEDROL [Suspect]
     Active Substance: METHYLPREDNISOLONE ACETATE
     Dosage: UNK
  2. OMNIPAQUE [Suspect]
     Active Substance: IOHEXOL
  3. LIDOCAINE [Concomitant]
     Active Substance: LIDOCAINE
  4. MARCAINE [Concomitant]
     Active Substance: BUPIVACAINE HYDROCHLORIDE
  5. PROPOFOL [Concomitant]
     Active Substance: PROPOFOL

REACTIONS (1)
  - Blood pressure decreased [Unknown]

NARRATIVE: CASE EVENT DATE: 20230113
